FAERS Safety Report 16819440 (Version 2)
Quarter: 2020Q4

REPORT INFORMATION
  Report Type: Spontaneous
  Country: US (occurrence: US)
  Receive Date: 20190917
  Receipt Date: 20201204
  Transmission Date: 20210113
  Serious: Yes (Other)
  Sender: FDA-Public Use
  Company Number: US-JNJFOC-20190913890

PATIENT
  Age: 48 Year
  Sex: Female
  Weight: 147.55 kg

DRUGS (27)
  1. CLOTRIMAZOLE AND BETAMETHASONE DIPROPIONATE [Concomitant]
     Active Substance: BETAMETHASONE\BETAMETHASONE DIPROPIONATE\CLOTRIMAZOLE
     Indication: RASH
     Dosage: 1-0.05%
     Route: 065
  2. GABAPENTIN. [Concomitant]
     Active Substance: GABAPENTIN
     Indication: NEUROPATHY PERIPHERAL
     Route: 065
  3. FOLIC ACID. [Concomitant]
     Active Substance: FOLIC ACID
     Dosage: HELP WITH METHOTREXATE AND OTEZLA SO DON^T GET RUN DOWN
     Route: 065
     Dates: start: 2017
  4. MIRENA [Concomitant]
     Active Substance: LEVONORGESTREL
     Indication: MENSTRUATION IRREGULAR
     Route: 065
     Dates: start: 2015
  5. OTEZLA [Concomitant]
     Active Substance: APREMILAST
  6. MELATONIN [Concomitant]
     Active Substance: MELATONIN
     Indication: SLEEP DISORDER
     Dosage: AT NIGHT AS NEEDED
     Route: 065
     Dates: start: 2016
  7. OXYCODONE [Concomitant]
     Active Substance: OXYCODONE
     Indication: SPINAL STENOSIS
  8. OXYCODONE [Concomitant]
     Active Substance: OXYCODONE
     Indication: CARPAL TUNNEL SYNDROME
  9. NAPROXEN SODIUM. [Concomitant]
     Active Substance: NAPROXEN SODIUM
     Indication: ARTHRALGIA
     Dosage: 660 MG/220 MG
     Route: 065
  10. VITAMIN B12 [Concomitant]
     Active Substance: CYANOCOBALAMIN
     Route: 065
  11. OMEPRAZOLE. [Concomitant]
     Active Substance: OMEPRAZOLE
     Indication: GASTROOESOPHAGEAL REFLUX DISEASE
     Route: 048
     Dates: start: 2015
  12. STELARA [Suspect]
     Active Substance: USTEKINUMAB
     Indication: PSORIATIC ARTHROPATHY
  13. OXYCODONE [Concomitant]
     Active Substance: OXYCODONE
     Indication: PSORIATIC ARTHROPATHY
     Dosage: ONCE EVERY 4-6 HRS AS NEEDED, MAX 4 DOSES
     Route: 065
     Dates: start: 2018
  14. OXYCODONE [Concomitant]
     Active Substance: OXYCODONE
     Indication: PATELLOFEMORAL PAIN SYNDROME
  15. VENTOLIN [Concomitant]
     Active Substance: ALBUTEROL SULFATE
     Indication: ASTHMA
     Dosage: 108-90 BASE MCG TWO PUFFS FOUR TIMES A DAY AS NEEDED
  16. AMITRIPTYLINE HCL [Concomitant]
     Active Substance: AMITRIPTYLINE
     Indication: RESTLESS LEGS SYNDROME
     Route: 065
     Dates: start: 2016
  17. CETIRIZINE [Concomitant]
     Active Substance: CETIRIZINE HYDROCHLORIDE
     Indication: MULTIPLE ALLERGIES
     Route: 065
     Dates: start: 2011
  18. REQUIP [Concomitant]
     Active Substance: ROPINIROLE HYDROCHLORIDE
     Indication: RESTLESS LEGS SYNDROME
     Dosage: AT BEDTIME
     Route: 065
     Dates: start: 2016
  19. DICYCLOMINE                        /00068601/ [Concomitant]
     Active Substance: DICYCLOMINE HYDROCHLORIDE
     Indication: IRRITABLE BOWEL SYNDROME
     Route: 065
     Dates: start: 2005
  20. CLOTRIMAZOLE AND BETAMETHASONE DIPROPIONATE [Concomitant]
     Active Substance: BETAMETHASONE\BETAMETHASONE DIPROPIONATE\CLOTRIMAZOLE
     Indication: FUNGAL INFECTION
  21. TRIAMCINOLONE ACETONIDE. [Concomitant]
     Active Substance: TRIAMCINOLONE ACETONIDE
     Indication: PSORIASIS
     Dosage: 0.1%, EVERYDAY AS NEEDED
     Route: 065
     Dates: start: 2016
  22. STELARA [Suspect]
     Active Substance: USTEKINUMAB
     Indication: GUTTATE PSORIASIS
     Route: 058
     Dates: start: 20170619, end: 201808
  23. NAPROXEN SODIUM. [Concomitant]
     Active Substance: NAPROXEN SODIUM
     Indication: MIGRAINE
  24. VITAMIN B6 [Concomitant]
     Active Substance: PYRIDOXINE HYDROCHLORIDE
     Indication: ARTHRITIS
     Route: 065
     Dates: start: 2017
  25. IRON [Concomitant]
     Active Substance: IRON
     Indication: ANAEMIA
     Route: 065
     Dates: start: 2011
  26. ZIAC                               /00821801/ [Concomitant]
     Active Substance: CEFIXIME
     Indication: BLOOD PRESSURE MEASUREMENT
     Dosage: 10-12.5 MG, 5-6.25 MG, TWO EACH MORNING
     Route: 065
     Dates: start: 2015
  27. FUROSEMIDE. [Concomitant]
     Active Substance: FUROSEMIDE
     Indication: OEDEMA
     Dosage: LASIX
     Route: 048
     Dates: start: 2016

REACTIONS (1)
  - Nail infection [Recovered/Resolved]

NARRATIVE: CASE EVENT DATE: 201811
